FAERS Safety Report 8668704 (Version 3)
Quarter: 2014Q3

REPORT INFORMATION
  Report Type: Report from Study
  Country: US (occurrence: US)
  Receive Date: 20120717
  Receipt Date: 20140702
  Transmission Date: 20150326
  Serious: Yes (Hospitalization, Other)
  Sender: FDA-Public Use
  Company Number: US-ELI_LILLY_AND_COMPANY-US201202001596

PATIENT
  Age: 51 Year
  Sex: Female
  Weight: 56.24 kg

DRUGS (2)
  1. TERIPARATIDE [Suspect]
     Active Substance: TERIPARATIDE
     Dosage: UNK UNK, QD
     Route: 065
  2. TERIPARATIDE [Suspect]
     Active Substance: TERIPARATIDE
     Indication: OSTEOPOROSIS
     Dosage: 20 UG, QD
     Route: 065
     Dates: start: 20120202

REACTIONS (9)
  - Renal impairment [Unknown]
  - Headache [Unknown]
  - Tooth loss [Unknown]
  - Post procedural haemorrhage [Recovered/Resolved with Sequelae]
  - Acidosis [Unknown]
  - Gastrointestinal disorder [Unknown]
  - Glomerular filtration rate decreased [Unknown]
  - Proteinuria [Unknown]
  - Sepsis [Unknown]

NARRATIVE: CASE EVENT DATE: 20120202
